FAERS Safety Report 5834708-8 (Version None)
Quarter: 2008Q3

REPORT INFORMATION
  Report Type: 
  Country: None (occurrence: None)
  Receive Date: 20080801
  Receipt Date: 20080721
  Transmission Date: 20090109
  Serious: Yes (Hospitalization)
  Sender: FDA-Public Use
  Company Number: 2008BI015538

PATIENT
  Age: 64 Year
  Sex: Female

DRUGS (3)
  1. AVONEX [Suspect]
     Indication: MULTIPLE SCLEROSIS
     Dosage: 30 UG; QW; IM, 30 UG; QW; IM, 15 UG; QW; IM
     Route: 030
     Dates: start: 20000401, end: 20030101
  2. AVONEX [Suspect]
     Indication: MULTIPLE SCLEROSIS
     Dosage: 30 UG; QW; IM, 30 UG; QW; IM, 15 UG; QW; IM
     Route: 030
     Dates: start: 20030101, end: 20080620
  3. AVONEX [Suspect]
     Indication: MULTIPLE SCLEROSIS
     Dosage: 30 UG; QW; IM, 30 UG; QW; IM, 15 UG; QW; IM
     Route: 030
     Dates: start: 20080620

REACTIONS (5)
  - CONTUSION [None]
  - ENDOTRACHEAL INTUBATION COMPLICATION [None]
  - HYPERTENSION [None]
  - IATROGENIC INJURY [None]
  - SUBARACHNOID HAEMORRHAGE [None]
